FAERS Safety Report 25323921 (Version 3)
Quarter: 2025Q2

REPORT INFORMATION
  Report Type: Spontaneous
  Country: FR (occurrence: FR)
  Receive Date: 20250516
  Receipt Date: 20250526
  Transmission Date: 20250717
  Serious: No
  Sender: ALEXION PHARMACEUTICALS
  Company Number: FR-AstraZeneca-CH-00867882A

PATIENT
  Age: 12 Year
  Weight: 35 kg

DRUGS (5)
  1. ANIFROLUMAB [Suspect]
     Active Substance: ANIFROLUMAB
     Indication: Skin lesion
     Dosage: 300 MILLIGRAM, Q4W
     Route: 065
  2. ANIFROLUMAB [Suspect]
     Active Substance: ANIFROLUMAB
     Indication: Polyarthritis
  3. ANIFROLUMAB [Suspect]
     Active Substance: ANIFROLUMAB
     Indication: Interstitial lung disease
  4. UNSPECIFIED INGREDIENT [Suspect]
     Active Substance: UNSPECIFIED INGREDIENT
  5. CORTICOSTEROID NOS [Suspect]
     Active Substance: CORTICOSTEROID NOS

REACTIONS (1)
  - Off label use [Unknown]
